FAERS Safety Report 19439653 (Version 1)
Quarter: 2021Q2

REPORT INFORMATION
  Report Type: Spontaneous
  Country: US (occurrence: US)
  Receive Date: 20210620
  Receipt Date: 20210620
  Transmission Date: 20210717
  Serious: No
  Sender: FDA-Public Use
  Company Number: US-ASTRAZENECA-2021A483110

PATIENT
  Age: 878 Month
  Sex: Male

DRUGS (2)
  1. BYDUREON BCISE [Suspect]
     Active Substance: EXENATIDE
     Indication: DIABETES MELLITUS
     Route: 058
     Dates: start: 202104
  2. BYDUREON [Concomitant]
     Active Substance: EXENATIDE
     Indication: DIABETES MELLITUS
     Route: 058

REACTIONS (8)
  - Device use issue [Unknown]
  - Wrong technique in device usage process [Unknown]
  - Depressed mood [Unknown]
  - Unevaluable event [Unknown]
  - Device leakage [Unknown]
  - Fatigue [Unknown]
  - Incorrect dose administered by device [Unknown]
  - Product administration error [Unknown]

NARRATIVE: CASE EVENT DATE: 202104
